FAERS Safety Report 23531981 (Version 2)
Quarter: 2024Q3

REPORT INFORMATION
  Report Type: Spontaneous
  Country: US (occurrence: US)
  Receive Date: 20240216
  Receipt Date: 20240910
  Transmission Date: 20241017
  Serious: No
  Sender: SANOFI AVENTIS
  Company Number: US-SA-SAC20240208001579

PATIENT
  Sex: Male

DRUGS (2)
  1. DUPIXENT [Suspect]
     Active Substance: DUPILUMAB
     Indication: Eczema
     Dosage: 600 MG, 1X
     Route: 058
     Dates: start: 202312, end: 202312
  2. DUPIXENT [Suspect]
     Active Substance: DUPILUMAB
     Indication: Dermatitis atopic
     Dosage: 300 MG, QOW
     Route: 058

REACTIONS (10)
  - COVID-19 [Unknown]
  - Cough [Unknown]
  - Pyrexia [Unknown]
  - Pain [Unknown]
  - Malaise [Unknown]
  - Skin fissures [Unknown]
  - Nasal congestion [Unknown]
  - Pruritus [Unknown]
  - Erythema [Unknown]
  - Eczema [Unknown]
